FAERS Safety Report 13090790 (Version 1)
Quarter: 2017Q1

REPORT INFORMATION
  Report Type: Report from Study
  Country: JP (occurrence: JP)
  Receive Date: 20170106
  Receipt Date: 20170106
  Transmission Date: 20170428
  Serious: Yes (Other)
  Sender: FDA-Public Use
  Company Number: JP-ROCHE-1875263

PATIENT
  Age: 45 Year
  Sex: Female

DRUGS (3)
  1. CEFTRIAXONE. [Suspect]
     Active Substance: CEFTRIAXONE
     Indication: PHARYNGITIS
     Route: 065
  2. CEFTRIAXONE. [Suspect]
     Active Substance: CEFTRIAXONE
     Indication: PYREXIA
     Route: 065
  3. TOLAZOLINE HYDROCHLORIDE. [Suspect]
     Active Substance: TOLAZOLINE HYDROCHLORIDE
     Indication: INSOMNIA
     Route: 065

REACTIONS (3)
  - Hypokalaemia [Unknown]
  - Torsade de pointes [Unknown]
  - Long QT syndrome [Not Recovered/Not Resolved]
